FAERS Safety Report 23748783 (Version 1)
Quarter: 2024Q2

REPORT INFORMATION
  Report Type: Spontaneous
  Country: US (occurrence: None)
  Receive Date: 20240416
  Receipt Date: 20240416
  Transmission Date: 20240715
  Serious: No
  Sender: FDA-Public Use
  Company Number: None

PATIENT
  Age: 22 Year
  Sex: Male
  Weight: 68.04 kg

DRUGS (1)
  1. HERBAL NOS [Suspect]
     Active Substance: HERBALS
     Dosage: OTHER QUANTITY : 2 OZ;?
     Route: 048
     Dates: start: 20230401

REACTIONS (3)
  - Drug dependence [None]
  - Toxicity to various agents [None]
  - Drug withdrawal syndrome [None]

NARRATIVE: CASE EVENT DATE: 20240415
